FAERS Safety Report 10890856 (Version 1)
Quarter: 2015Q1

REPORT INFORMATION
  Report Type: Spontaneous
  Country: FR (occurrence: FR)
  Receive Date: 20150305
  Receipt Date: 20150305
  Transmission Date: 20150721
  Serious: Yes (Congenital Anomaly, Other)
  Sender: FDA-Public Use
  Company Number: FR-GLAXOSMITHKLINE-FR2014GSK038136

PATIENT
  Age: 0 Year
  Sex: Female
  Weight: 3.21 kg

DRUGS (3)
  1. DEPAKINE [Suspect]
     Active Substance: VALPROATE SODIUM
     Indication: PRODUCT USED FOR UNKNOWN INDICATION
     Dosage: UNK
     Route: 064
     Dates: end: 2013
  2. NEXPLANON [Suspect]
     Active Substance: ETONOGESTREL
     Indication: PRODUCT USED FOR UNKNOWN INDICATION
  3. LAMICTAL [Suspect]
     Active Substance: LAMOTRIGINE
     Indication: EPILEPSY
     Route: 064

REACTIONS (1)
  - Talipes [Not Recovered/Not Resolved]

NARRATIVE: CASE EVENT DATE: 20130819
